FAERS Safety Report 4390261-X (Version None)
Quarter: 2004Q3

REPORT INFORMATION
  Report Type: 
  Country: None (occurrence: None)
  Receive Date: 20040706
  Receipt Date: 20040621
  Transmission Date: 20050211
  Serious: Yes (Other)
  Sender: FDA-Public Use
  Company Number: MX-ROCHE-371794

PATIENT
  Age: 42 Year
  Sex: Female
  Weight: 52 kg

DRUGS (2)
  1. XENICAL [Suspect]
     Indication: OBESITY
     Route: 048
     Dates: start: 20040205, end: 20040620
  2. XENICAL [Suspect]
     Route: 048

REACTIONS (2)
  - LOWER GASTROINTESTINAL HAEMORRHAGE [None]
  - STOMACH DISCOMFORT [None]
